FAERS Safety Report 8731595 (Version 3)
Quarter: 2012Q4

REPORT INFORMATION
  Report Type: 
  Country: US (occurrence: US)
  Receive Date: 20120820
  Receipt Date: 20121009
  Transmission Date: 20130627
  Serious: Yes (Hospitalization)
  Sender: FDA-Public Use
  Company Number: US-JNJFOC-20120805970

PATIENT
  Age: 51 None
  Sex: Female
  Weight: 78.93 kg

DRUGS (7)
  1. INVEGA SUSTENNA [Suspect]
     Indication: BIPOLAR DISORDER
     Route: 030
     Dates: start: 20110713, end: 201204
  2. INVEGA SUSTENNA [Suspect]
     Indication: BIPOLAR DISORDER
     Route: 030
     Dates: start: 201204
  3. INVEGA [Suspect]
     Indication: BIPOLAR DISORDER
     Route: 048
     Dates: start: 201204
  4. RISPERDAL [Suspect]
     Indication: PRODUCT USED FOR UNKNOWN INDICATION
     Route: 048
     Dates: end: 201110
  5. RISPERDAL [Suspect]
     Indication: PRODUCT USED FOR UNKNOWN INDICATION
     Route: 048
     Dates: start: 201110
  6. TEGRETOL [Concomitant]
     Indication: BIPOLAR DISORDER
     Route: 048
     Dates: start: 201107
  7. BENADRYL [Concomitant]
     Indication: SLEEP DISORDER THERAPY
     Route: 048

REACTIONS (14)
  - Treatment noncompliance [Recovered/Resolved]
  - Hospitalisation [Recovered/Resolved]
  - Hyperhidrosis [Not Recovered/Not Resolved]
  - Sedation [Unknown]
  - Tooth extraction [Recovered/Resolved]
  - Toothache [Recovered/Resolved]
  - Fall [Unknown]
  - Pain in extremity [Not Recovered/Not Resolved]
  - Blood pressure increased [Unknown]
  - Headache [Recovered/Resolved]
  - Muscle twitching [Not Recovered/Not Resolved]
  - Insomnia [Unknown]
  - Overdose [Not Recovered/Not Resolved]
  - Drug ineffective [Unknown]
